FAERS Safety Report 10207641 (Version 1)
Quarter: 2014Q2

REPORT INFORMATION
  Report Type: Spontaneous
  Country: US (occurrence: US)
  Receive Date: 20140530
  Receipt Date: 20140530
  Transmission Date: 20141212
  Serious: No
  Sender: FDA-Public Use
  Company Number: US-GLAXOSMITHKLINE-A1052926A

PATIENT
  Age: 69 Year
  Sex: Female

DRUGS (20)
  1. VENTOLIN HFA [Suspect]
     Indication: ASTHMA
     Route: 055
     Dates: start: 2012
  2. ADVAIR [Concomitant]
  3. SPIRIVA [Concomitant]
  4. ALBUTEROL [Concomitant]
  5. ATROVENT [Concomitant]
  6. SERTRALINE [Concomitant]
  7. CLARINEX [Concomitant]
  8. OMEPRAZOLE [Concomitant]
  9. BISACODYL [Concomitant]
  10. SIMVASTATIN [Concomitant]
  11. IRON [Concomitant]
  12. DULCOLAX [Concomitant]
  13. ONGLYZA [Concomitant]
  14. ALPRAZOLAM [Concomitant]
  15. HYDROCODONE [Concomitant]
  16. GUAIFENESIN [Concomitant]
  17. OXYGEN [Concomitant]
  18. DUONEB [Concomitant]
  19. LATANOPROST [Concomitant]
  20. ASTEPRO [Concomitant]

REACTIONS (2)
  - Dysgeusia [Unknown]
  - Blood glucose fluctuation [Unknown]
